FAERS Safety Report 19954867 (Version 1)
Quarter: 2021Q4

REPORT INFORMATION
  Report Type: Spontaneous
  Country: US (occurrence: US)
  Receive Date: 20211012
  Receipt Date: 20211012
  Transmission Date: 20220303
  Serious: Yes (Hospitalization)
  Sender: FDA-Public Use
  Company Number: None

PATIENT
  Age: 70 Year
  Sex: Male

DRUGS (1)
  1. AFINITOR [Suspect]
     Active Substance: EVEROLIMUS
     Route: 048
     Dates: start: 202109

REACTIONS (4)
  - Hypoglycaemia [None]
  - Taste disorder [None]
  - Hallucination, visual [None]
  - Therapy interrupted [None]

NARRATIVE: CASE EVENT DATE: 20211009
